FAERS Safety Report 8115384-0 (Version None)
Quarter: 2012Q1

REPORT INFORMATION
  Report Type: 
  Country: None (occurrence: None)
  Receive Date: 20120206
  Receipt Date: 20120206
  Transmission Date: 20120608
  Serious: No
  Sender: FDA-Public Use
  Company Number: None

PATIENT
  Age: 68 Year
  Sex: Female
  Weight: 77.11 kg

DRUGS (1)
  1. AMIODARONE HCL [Suspect]
     Indication: ATRIAL FIBRILLATION
     Dosage: 200.0 MG
     Route: 048
     Dates: start: 20120126, end: 20120203

REACTIONS (5)
  - HEADACHE [None]
  - GLOSSODYNIA [None]
  - BACK PAIN [None]
  - HEART RATE DECREASED [None]
  - OROPHARYNGEAL PAIN [None]
